FAERS Safety Report 10076105 (Version 1)
Quarter: 2014Q2

REPORT INFORMATION
  Report Type: Spontaneous
  Country: US (occurrence: US)
  Receive Date: 20140414
  Receipt Date: 20140414
  Transmission Date: 20141212
  Serious: No
  Sender: FDA-Public Use
  Company Number: US-PFIZER INC-2014099243

PATIENT
  Age: 44 Year
  Sex: Female

DRUGS (6)
  1. LYRICA [Suspect]
     Dosage: 100 MG, 4X/DAY (QID)
  2. PRISTIQ [Suspect]
     Dosage: 50 MG, DAILY
  3. FLEXERIL [Concomitant]
     Dosage: UNK
  4. PRILOSEC [Concomitant]
     Dosage: UNK
  5. ALEVE [Concomitant]
     Dosage: UNK
  6. ADDERALL [Concomitant]
     Dosage: UNK

REACTIONS (2)
  - Pain [Unknown]
  - Impaired work ability [Unknown]
